FAERS Safety Report 8217567-8 (Version None)
Quarter: 2012Q1

REPORT INFORMATION
  Report Type: 
  Country: None (occurrence: None)
  Receive Date: 20120319
  Receipt Date: 20120319
  Transmission Date: 20120608
  Serious: Yes (Death)
  Sender: FDA-Public Use
  Company Number: None

PATIENT
  Age: 66 Year
  Sex: Female
  Weight: 90.6 kg

DRUGS (1)
  1. DABIGAGRAN [Suspect]
     Indication: ATRIAL FIBRILLATION
     Dosage: 150 MG
     Route: 048

REACTIONS (6)
  - DIALYSIS [None]
  - SUBDURAL HAEMATOMA [None]
  - SKULL FRACTURE [None]
  - LOSS OF CONSCIOUSNESS [None]
  - CEREBRAL HAEMATOMA [None]
  - FALL [None]
